FAERS Safety Report 4791917-7 (Version None)
Quarter: 2005Q4

REPORT INFORMATION
  Report Type: 
  Country: None (occurrence: None)
  Receive Date: 20051005
  Receipt Date: 20050920
  Transmission Date: 20060501
  Serious: Yes (Other)
  Sender: FDA-Public Use
  Company Number: 2005-BP-16700RO

PATIENT
  Age: 54 Year
  Sex: Female

DRUGS (3)
  1. CYCLOPHOSPHAMIDE [Suspect]
     Indication: BREAST CANCER
     Dosage: 600 MG/M^2, IV
     Route: 042
  2. EPIRUBICIN [Suspect]
     Indication: BREAST CANCER
     Dosage: 90 MG/M^2, IV
     Route: 042
  3. FLUOROURACIL [Suspect]
     Indication: BREAST CANCER
     Dosage: 600 MG/M, IV
     Route: 042

REACTIONS (7)
  - ANGIOPATHY [None]
  - COLLAGEN DISORDER [None]
  - FIBROSIS [None]
  - MUSCLE CONTRACTURE [None]
  - SCLERODERMA [None]
  - SKIN HYPERPIGMENTATION [None]
  - VEIN DISORDER [None]
